FAERS Safety Report 7015011-X (Version None)
Quarter: 2010Q3

REPORT INFORMATION
  Report Type: 
  Country: None (occurrence: None)
  Receive Date: 20100927
  Receipt Date: 20090825
  Transmission Date: 20110219
  Serious: No
  Sender: FDA-Public Use
  Company Number: US-ASTRAZENECA-2009SE09838

PATIENT
  Age: 45 Year
  Sex: Female

DRUGS (5)
  1. ARIMIDEX [Suspect]
     Route: 048
     Dates: start: 20090801
  2. METOPROLOL TARTRATE [Concomitant]
  3. ASPIRIN [Concomitant]
  4. TRICOR [Concomitant]
  5. CRESTOR [Concomitant]

REACTIONS (4)
  - ALTERED STATE OF CONSCIOUSNESS [None]
  - CONFUSIONAL STATE [None]
  - MOOD ALTERED [None]
  - VISION BLURRED [None]
